FAERS Safety Report 7035536-0 (Version None)
Quarter: 2010Q4

REPORT INFORMATION
  Report Type: 
  Country: None (occurrence: None)
  Receive Date: 20101008
  Receipt Date: 20100929
  Transmission Date: 20110411
  Serious: Yes (Hospitalization, Disabling, Other)
  Sender: FDA-Public Use
  Company Number: PHHY2010CA60369

PATIENT
  Sex: Female

DRUGS (3)
  1. SANDOSTATIN LAR [Suspect]
     Indication: NEUROENDOCRINE CARCINOMA
     Dosage: 20 MG, QMO
     Route: 030
     Dates: start: 20040901, end: 20100708
  2. SANDOSTATIN LAR [Suspect]
     Dosage: UNK
     Dates: start: 20100916, end: 20100927
  3. SANDOSTATIN [Suspect]
     Indication: NEUROENDOCRINE CARCINOMA
     Dosage: 100 UG, TID
     Route: 058
     Dates: start: 20100916, end: 20100927

REACTIONS (13)
  - CARDIAC FAILURE [None]
  - CHEST DISCOMFORT [None]
  - CHOKING [None]
  - DYSPNOEA [None]
  - ERYTHEMA [None]
  - FLUID RETENTION [None]
  - HYPERSENSITIVITY [None]
  - HYPERTENSION [None]
  - MALIGNANT NEOPLASM PROGRESSION [None]
  - NAUSEA [None]
  - OEDEMA PERIPHERAL [None]
  - PULMONARY OEDEMA [None]
  - VOMITING [None]
